FAERS Safety Report 8543874-5 (Version None)
Quarter: 2012Q3

REPORT INFORMATION
  Report Type: 
  Country: None (occurrence: None)
  Receive Date: 20120727
  Receipt Date: 20120720
  Transmission Date: 20120928
  Serious: Yes (Hospitalization)
  Sender: FDA-Public Use
  Company Number: JP-B.I. PHARMACEUTICALS,INC./RIDGEFIELD-2012-BP-15550NB

PATIENT
  Age: 83 Year
  Sex: Female
  Weight: 43.2 kg

DRUGS (6)
  1. TORSEMIDE [Suspect]
     Indication: CARDIAC FAILURE
     Dosage: 8 MG
     Route: 048
     Dates: start: 20120227
  2. DIGOXIN [Suspect]
     Indication: CARDIAC FAILURE
     Dosage: 0.125 MG
     Route: 048
     Dates: start: 20120305
  3. CANDESARTAN CILEXETIL [Suspect]
     Indication: CARDIAC FAILURE
  4. DIGOXIN [Suspect]
     Indication: ATRIAL FIBRILLATION
  5. PRADAXA [Suspect]
     Indication: ATRIAL FIBRILLATION
     Dosage: 220 MG
     Route: 048
     Dates: start: 20120319
  6. CANDESARTAN CILEXETIL [Suspect]
     Indication: HYPERTENSION
     Dosage: 8 MG
     Route: 048
     Dates: start: 20120227

REACTIONS (1)
  - CEREBROVASCULAR ACCIDENT [None]
